FAERS Safety Report 4682041-2 (Version None)
Quarter: 2005Q2

REPORT INFORMATION
  Report Type: 
  Country: None (occurrence: None)
  Receive Date: 20050526
  Receipt Date: 20050216
  Transmission Date: 20051028
  Serious: Yes (Other)
  Sender: FDA-Public Use
  Company Number: US-JNJFOC-20050204994

PATIENT
  Age: 48 Year
  Sex: Female

DRUGS (18)
  1. RISPERDAL [Suspect]
     Indication: SCHIZOPHRENIA, PARANOID TYPE
     Dosage: SEE IMAGE
     Route: 030
     Dates: start: 20040115, end: 20040515
  2. RISPERDAL [Suspect]
     Indication: SCHIZOPHRENIA, PARANOID TYPE
     Dosage: SEE IMAGE
     Route: 030
     Dates: start: 20040515, end: 20041001
  3. RISPERDAL [Suspect]
     Indication: SCHIZOPHRENIA, PARANOID TYPE
     Dosage: SEE IMAGE
     Route: 030
     Dates: start: 20050128
  4. DOPAMET (METHYLDOPA) [Concomitant]
  5. TRILEPTOL (OXCARBAZEPINE) [Concomitant]
  6. KEPPRA [Concomitant]
  7. LAMICTAL [Concomitant]
  8. LORTAB [Concomitant]
  9. TRAMADOL HCL [Concomitant]
  10. FOLTX (ALL OTHER THERAPEUTIC PRODUCTS) [Concomitant]
  11. LODINE [Concomitant]
  12. AXID [Concomitant]
  13. HUMIBID (GUAIFENESIN) [Concomitant]
  14. QVAR (BECLOMETHASONE DIPROPIONATE) [Concomitant]
  15. NASACORT [Concomitant]
  16. ATIVAN [Concomitant]
  17. BENADRYL [Concomitant]
  18. CLARITIN [Concomitant]

REACTIONS (11)
  - ASTHENIA [None]
  - ASTHMA [None]
  - CONVULSION [None]
  - DEPRESSION [None]
  - DIPLOPIA [None]
  - DYSPNOEA [None]
  - GASTROOESOPHAGEAL REFLUX DISEASE [None]
  - NAUSEA [None]
  - TREMOR [None]
  - VOMITING [None]
  - WEIGHT INCREASED [None]
